FAERS Safety Report 5415823-X (Version None)
Quarter: 2007Q3

REPORT INFORMATION
  Report Type: 
  Country: None (occurrence: None)
  Receive Date: 20070713
  Receipt Date: 20070502
  Transmission Date: 20080115
  Serious: Yes (Hospitalization)
  Sender: FDA-Public Use
  Company Number: US-JNJFOC-20060904294

PATIENT
  Age: 44 Year
  Sex: Female
  Weight: 70.7611 kg

DRUGS (7)
  1. ORTHO EVRA [Suspect]
     Indication: MENORRHAGIA
     Dosage: TRANSDERMAL
     Route: 062
     Dates: start: 20020701, end: 20020801
  2. ANAPROX [Concomitant]
  3. CORGARD [Concomitant]
  4. ELAVIL [Concomitant]
  5. FIORICET [Concomitant]
  6. IMITREX [Concomitant]
  7. CORICIDIN [Concomitant]

REACTIONS (2)
  - DEEP VEIN THROMBOSIS [None]
  - OVARIAN CYST RUPTURED [None]
